FAERS Safety Report 13990993 (Version 1)
Quarter: 2017Q3

REPORT INFORMATION
  Report Type: Spontaneous
  Country: US (occurrence: None)
  Receive Date: 20170920
  Receipt Date: 20170920
  Transmission Date: 20171128
  Serious: No
  Sender: FDA-Public Use
  Company Number: None

PATIENT
  Age: 59 Year
  Sex: Male
  Weight: 75.75 kg

DRUGS (2)
  1. FENTANYL TRANSDERMAL SYSTEM [Suspect]
     Active Substance: FENTANYL
     Indication: CHRONIC IDIOPATHIC PAIN SYNDROME
     Dosage: Q48HRS, PATCH
     Dates: start: 20170512, end: 20170909
  2. FENTANYL TRANSDERMAL SYSTEM [Suspect]
     Active Substance: FENTANYL
     Indication: BACK DISORDER
     Dosage: Q48HRS,  PATCH
     Dates: start: 20170512, end: 20170709

REACTIONS (3)
  - Mobility decreased [None]
  - Breakthrough pain [None]
  - Drug ineffective [None]

NARRATIVE: CASE EVENT DATE: 20170907
